FAERS Safety Report 7071989-X (Version None)
Quarter: 2010Q4

REPORT INFORMATION
  Report Type: 
  Country: None (occurrence: None)
  Receive Date: 20101029
  Receipt Date: 20091116
  Transmission Date: 20110411
  Serious: No
  Sender: FDA-Public Use
  Company Number: A0817236A

PATIENT
  Age: 68 Year
  Sex: Female

DRUGS (9)
  1. ADVAIR DISKUS 100/50 [Suspect]
     Indication: ASTHMA
     Dosage: 1PUFF TWICE PER DAY
     Route: 055
     Dates: start: 20061101
  2. SEREVENT [Suspect]
     Indication: ASTHMA
     Route: 055
     Dates: start: 20060101
  3. DIAVAN [Concomitant]
  4. SINGULAIR [Concomitant]
  5. POTASSIUM CHLORIDE [Concomitant]
  6. VIT D [Concomitant]
  7. CALCIUM [Concomitant]
  8. MULTI-VITAMIN [Concomitant]
  9. ADVIL [Concomitant]

REACTIONS (2)
  - EXPIRED DRUG ADMINISTERED [None]
  - MUSCLE SPASMS [None]
